FAERS Safety Report 4451148-7 (Version None)
Quarter: 2004Q3

REPORT INFORMATION
  Report Type: 
  Country: None (occurrence: None)
  Receive Date: 20040916
  Receipt Date: 20040902
  Transmission Date: 20050211
  Serious: Yes (Other)
  Sender: FDA-Public Use
  Company Number: 200418757GDDC

PATIENT
  Age: 38 Year
  Sex: Male

DRUGS (4)
  1. GLIBENCLAMIDE [Suspect]
     Dosage: DOSE: UNK
     Dates: start: 19990101, end: 20010101
  2. GLIMEPIRIDE [Suspect]
     Dosage: DOSE: UNK
  3. GLUCOPHAGE [Suspect]
     Dosage: DOSE: UNK
     Route: 048
     Dates: start: 19970101
  4. ACARBOSE [Suspect]
     Dosage: DOSE: UNK
     Dates: start: 20010101

REACTIONS (2)
  - PROTHROMBIN TIME PROLONGED [None]
  - THROMBOCYTOPENIA [None]
